FAERS Safety Report 4421998-1 (Version None)
Quarter: 2004Q3

REPORT INFORMATION
  Report Type: 
  Country: None (occurrence: None)
  Receive Date: 20040806
  Receipt Date: 20040806
  Transmission Date: 20050211
  Serious: Yes (Hospitalization)
  Sender: FDA-Public Use
  Company Number: None

PATIENT
  Age: 77 Year
  Sex: Female

DRUGS (2)
  1. LANTUS [Suspect]
     Indication: DIABETES MELLITUS
     Dosage: 20 UNITS QHS SQ
     Route: 058
  2. PRANDIN [Suspect]
     Dosage: 4 MG DAILY -1 UN ORAL
     Route: 048

REACTIONS (2)
  - COMA [None]
  - LOSS OF CONSCIOUSNESS [None]
